FAERS Safety Report 8066794-1 (Version None)
Quarter: 2012Q1

REPORT INFORMATION
  Report Type: 
  Country: None (occurrence: None)
  Receive Date: 20120124
  Receipt Date: 20120117
  Transmission Date: 20120608
  Serious: Yes (Other)
  Sender: FDA-Public Use
  Company Number: US-ROCHE-1006345

PATIENT
  Sex: Male
  Weight: 86.26 kg

DRUGS (2)
  1. ACCUTANE [Suspect]
     Dates: end: 20041118
  2. ACCUTANE [Suspect]
     Indication: ACNE
     Dates: start: 20040401, end: 20040901

REACTIONS (5)
  - CROHN'S DISEASE [None]
  - INFLAMMATORY BOWEL DISEASE [None]
  - ACNE [None]
  - IRRITABLE BOWEL SYNDROME [None]
  - INTESTINAL HAEMORRHAGE [None]
